FAERS Safety Report 24418897 (Version 1)
Quarter: 2024Q4

REPORT INFORMATION
  Report Type: Spontaneous
  Country: US (occurrence: US)
  Receive Date: 20241009
  Receipt Date: 20241009
  Transmission Date: 20250114
  Serious: Yes (Other)
  Sender: BRISTOL MYERS SQUIBB
  Company Number: US-BRISTOL-MYERS SQUIBB COMPANY-2024-156764

PATIENT
  Age: 61 Year
  Sex: Female
  Weight: 65.77 kg

DRUGS (2)
  1. NULOJIX [Suspect]
     Active Substance: BELATACEPT
     Indication: Renal transplant
     Route: 042
     Dates: start: 20230505
  2. MYFORTIC [Concomitant]
     Active Substance: MYCOPHENOLATE SODIUM
     Indication: Product used for unknown indication

REACTIONS (5)
  - Ear congestion [Unknown]
  - Tinnitus [Unknown]
  - Ear discomfort [Unknown]
  - Deafness [Unknown]
  - Autoimmune inner ear disease [Unknown]

NARRATIVE: CASE EVENT DATE: 20230618
